FAERS Safety Report 10037159 (Version 1)
Quarter: 2014Q1

REPORT INFORMATION
  Report Type: Spontaneous
  Country: IT (occurrence: None)
  Receive Date: 20140324
  Receipt Date: 20140324
  Transmission Date: 20141002
  Serious: Yes (Hospitalization)
  Sender: FDA-Public Use
  Company Number: 2014AP002015

PATIENT
  Age: 65 Year
  Sex: Female

DRUGS (1)
  1. AZITHROMYCIN (AZITHROMYCIN) [Suspect]
     Indication: SINUSITIS
     Route: 048
     Dates: start: 20140211, end: 20140211

REACTIONS (1)
  - Laryngeal oedema [None]
